FAERS Safety Report 16303042 (Version 1)
Quarter: 2019Q2

REPORT INFORMATION
  Report Type: Spontaneous
  Country: US (occurrence: US)
  Receive Date: 20190513
  Receipt Date: 20190513
  Transmission Date: 20190711
  Serious: No
  Sender: FDA-Public Use
  Company Number: US-GLENMARK PHARMACEUTICALS-2019GMK039932

PATIENT

DRUGS (1)
  1. CLOBESTASOL PROPIONATE TOPICAL SOLUTION USP 0.0 [Suspect]
     Active Substance: CLOBETASOL PROPIONATE
     Indication: EAR DISORDER
     Dosage: UNK
     Route: 065

REACTIONS (1)
  - Product use issue [Unknown]
